FAERS Safety Report 18543502 (Version 1)
Quarter: 2020Q4

REPORT INFORMATION
  Report Type: Spontaneous
  Country: US (occurrence: US)
  Receive Date: 20201124
  Receipt Date: 20201124
  Transmission Date: 20210114
  Serious: No
  Sender: FDA-Public Use
  Company Number: US-BAXTER-2020BAX023645

PATIENT
  Sex: Male
  Weight: 79.5 kg

DRUGS (5)
  1. ADEMPAS [Concomitant]
     Active Substance: RIOCIGUAT
     Indication: PRODUCT USED FOR UNKNOWN INDICATION
     Route: 065
  2. ORENITRAM [Suspect]
     Active Substance: TREPROSTINIL
     Dosage: PER ORAL, TABLET
     Route: 048
     Dates: start: 20201008
  3. ORENITRAM [Suspect]
     Active Substance: TREPROSTINIL
     Indication: PULMONARY ARTERIAL HYPERTENSION
     Dosage: ORAL TABLET
     Route: 048
     Dates: start: 20201008
  4. PENICILLIN G POTASSIUM INJECTION, USP [Suspect]
     Active Substance: PENICILLIN G POTASSIUM
     Indication: POST PROCEDURAL INFECTION
     Route: 065
     Dates: start: 2015, end: 20201016
  5. TREPROSTINI L (TREPROSTINIL DIOLAMIN) [Suspect]
     Active Substance: TREPROSTINIL DIOLAMINE
     Indication: PULMONARY ARTERIAL HYPERTENSION
     Dosage: UNKNOWN
     Route: 048
     Dates: start: 20201008

REACTIONS (1)
  - Platelet count decreased [Unknown]

NARRATIVE: CASE EVENT DATE: 2020
